FAERS Safety Report 9648228 (Version 1)
Quarter: 2013Q4

REPORT INFORMATION
  Report Type: Spontaneous
  Country: JP (occurrence: JP)
  Receive Date: 20131028
  Receipt Date: 20131028
  Transmission Date: 20140711
  Serious: Yes (Other)
  Sender: FDA-Public Use
  Company Number: JP-OTSUKA-JP-2013-14476

PATIENT
  Age: 77 Year
  Sex: Female

DRUGS (2)
  1. PLETAAL [Suspect]
     Indication: INTERMITTENT CLAUDICATION
     Dosage: 50 MG MILLIGRAM(S), QD
     Route: 048
  2. PLETAAL [Suspect]
     Dosage: 200 MG MILLIGRAM(S), QD
     Route: 048

REACTIONS (5)
  - Dyslalia [Recovered/Resolved]
  - VIIth nerve paralysis [Recovered/Resolved]
  - Asthenia [Recovered/Resolved]
  - Hypoaesthesia [Recovered/Resolved]
  - Transient ischaemic attack [Unknown]
